FAERS Safety Report 13554750 (Version 4)
Quarter: 2017Q3

REPORT INFORMATION
  Report Type: Spontaneous
  Country: US (occurrence: US)
  Receive Date: 20170517
  Receipt Date: 20170721
  Transmission Date: 20171127
  Serious: Yes (Other)
  Sender: FDA-Public Use
  Company Number: US-BAYER-2017-093723

PATIENT
  Age: 35 Year
  Sex: Female
  Weight: 97.05 kg

DRUGS (1)
  1. SKYLA [Suspect]
     Active Substance: LEVONORGESTREL
     Indication: CONTRACEPTION
     Dosage: 14 MCG/24HR, CONT
     Route: 015
     Dates: start: 20151027, end: 20170514

REACTIONS (5)
  - Ectopic pregnancy with contraceptive device [None]
  - Vaginal infection [None]
  - Drug ineffective [None]
  - Ruptured ectopic pregnancy [None]
  - Pain [None]

NARRATIVE: CASE EVENT DATE: 20170514
